FAERS Safety Report 9509243 (Version 1)
Quarter: 2013Q3

REPORT INFORMATION
  Report Type: Spontaneous
  Country: US (occurrence: US)
  Receive Date: 20130909
  Receipt Date: 20130909
  Transmission Date: 20140515
  Serious: No
  Sender: FDA-Public Use
  Company Number: US-BRISTOL-MYERS SQUIBB COMPANY-17336116

PATIENT
  Age: 57 Year
  Sex: Male
  Weight: 82.54 kg

DRUGS (10)
  1. ABILIFY TABS 10 MG [Suspect]
     Dates: start: 2012
  2. SEROQUEL [Concomitant]
  3. TRAZODONE HCL [Concomitant]
  4. BUSPIRONE [Concomitant]
  5. SPIRONOLACTONE [Concomitant]
  6. LAMOTRIGINE [Concomitant]
  7. ROPINIROLE [Concomitant]
  8. FOLIC ACID [Concomitant]
  9. MULTIVITAMINS [Concomitant]
  10. LEVOTHYROXINE [Concomitant]

REACTIONS (4)
  - Paraesthesia [Unknown]
  - Dyskinesia [Unknown]
  - Weight increased [Unknown]
  - Memory impairment [Unknown]
